FAERS Safety Report 25478557 (Version 1)
Quarter: 2025Q2

REPORT INFORMATION
  Report Type: Spontaneous
  Country: US (occurrence: None)
  Receive Date: 20250619
  Receipt Date: 20250619
  Transmission Date: 20250717
  Serious: Yes (Other)
  Sender: FDA-CTU
  Company Number: None

PATIENT
  Age: 24 Year
  Sex: Female
  Weight: 58.97 kg

DRUGS (1)
  1. KYLEENA [Suspect]
     Active Substance: LEVONORGESTREL

REACTIONS (5)
  - Depression [None]
  - Anxiety [None]
  - Complication associated with device [None]
  - Suicidal ideation [None]
  - Intra-uterine contraceptive device removal [None]

NARRATIVE: CASE EVENT DATE: 20230501
